FAERS Safety Report 11728833 (Version 1)
Quarter: 2015Q4

REPORT INFORMATION
  Report Type: Spontaneous
  Country: AU (occurrence: AU)
  Receive Date: 20151112
  Receipt Date: 20151112
  Transmission Date: 20160304
  Serious: Yes (Other)
  Sender: FDA-Public Use
  Company Number: AU-PFIZER INC-2015386448

PATIENT
  Age: 37 Year
  Sex: Female

DRUGS (1)
  1. XELJANZ [Suspect]
     Active Substance: TOFACITINIB CITRATE
     Indication: RHEUMATOID ARTHRITIS
     Dosage: 5 MG, 2X/DAY
     Dates: start: 20150908, end: 2015

REACTIONS (2)
  - Ear infection [Recovered/Resolved]
  - Mastoiditis [Recovered/Resolved]

NARRATIVE: CASE EVENT DATE: 20151008
